FAERS Safety Report 4458592-2 (Version None)
Quarter: 2004Q3

REPORT INFORMATION
  Report Type: 
  Country: None (occurrence: None)
  Receive Date: 20040917
  Receipt Date: 20030815
  Transmission Date: 20050211
  Serious: Yes (Hospitalization)
  Sender: FDA-Public Use
  Company Number: US-JNJFOC-20030803546

PATIENT
  Age: 23 Year
  Sex: Female
  Weight: 56.6996 kg

DRUGS (1)
  1. TOPAMAX [Suspect]
     Indication: DRUG USE FOR UNKNOWN INDICATION
     Dosage: 500 MG, IN 1 DAY, ORAL
     Route: 048

REACTIONS (2)
  - DEHYDRATION [None]
  - HALLUCINATION [None]
